FAERS Safety Report 6525868-4 (Version None)
Quarter: 2010Q1

REPORT INFORMATION
  Report Type: 
  Country: None (occurrence: None)
  Receive Date: 20100104
  Receipt Date: 20091222
  Transmission Date: 20100710
  Serious: Yes (Hospitalization, Other)
  Sender: FDA-Public Use
  Company Number: B0622214A

PATIENT
  Sex: Male

DRUGS (4)
  1. HYCAMTIN [Suspect]
     Indication: SMALL CELL CARCINOMA
     Dosage: 4.5MG PER DAY
     Route: 048
     Dates: start: 20091204, end: 20091208
  2. IBRUPROFEN [Concomitant]
  3. CODEINE SUL TAB [Concomitant]
  4. MEGESTROL ACETATE [Concomitant]

REACTIONS (2)
  - EPISTAXIS [None]
  - GASTROINTESTINAL HAEMORRHAGE [None]
